FAERS Safety Report 6663790-3 (Version None)
Quarter: 2010Q2

REPORT INFORMATION
  Report Type: 
  Country: None (occurrence: None)
  Receive Date: 20100401
  Receipt Date: 20100323
  Transmission Date: 20101027
  Serious: Yes (Life-Threatening, Other)
  Sender: FDA-Public Use
  Company Number: US-GENZYME-CLOF-1000907

PATIENT
  Age: 16 Year
  Sex: Male

DRUGS (7)
  1. CLOLAR [Suspect]
     Indication: ACUTE LEUKAEMIA
     Dosage: 40 MG/M2, QDX5 DAYS 3-7
     Route: 042
  2. TOPOTECAN [Suspect]
     Indication: ACUTE LEUKAEMIA
     Dosage: 1 MG/M2, QD, DAY 0-4
     Route: 042
  3. VINORELBINE [Suspect]
     Indication: ACUTE LEUKAEMIA
     Dosage: 20 MG/M2, QW, DAYS 0, 7, AND 14
     Route: 042
  4. THIOTEPA [Suspect]
     Indication: ACUTE LEUKAEMIA
     Dosage: 15 MG/M2, ONCE, DAY 2
     Route: 042
  5. DEXAMETHASONE [Concomitant]
     Indication: DRUG USE FOR UNKNOWN INDICATION
     Dosage: 45 MG/M2, TID X7 DAYS
     Route: 065
  6. GRANULOCYTE COLONY STIMULATING FACTOR [Concomitant]
     Indication: DRUG USE FOR UNKNOWN INDICATION
     Dosage: 5 MCG/KG, QD
     Route: 065
  7. ARA-C [Concomitant]
     Indication: DRUG USE FOR UNKNOWN INDICATION
     Dosage: 70 MG, ONCE
     Route: 037

REACTIONS (7)
  - ACUTE RESPIRATORY DISTRESS SYNDROME [None]
  - BACTERAEMIA [None]
  - BLOOD AMYLASE INCREASED [None]
  - COLITIS [None]
  - HYPOTENSION [None]
  - LIPASE INCREASED [None]
  - LUNG INFECTION [None]
